FAERS Safety Report 17278313 (Version 1)
Quarter: 2020Q1

REPORT INFORMATION
  Report Type: Spontaneous
  Country: US (occurrence: US)
  Receive Date: 20200116
  Receipt Date: 20200116
  Transmission Date: 20200409
  Serious: Yes (Hospitalization)
  Sender: FDA-Public Use
  Company Number: None

PATIENT
  Age: 63 Year
  Sex: Male
  Weight: 90 kg

DRUGS (2)
  1. METHAZOLAMIDE. [Suspect]
     Active Substance: METHAZOLAMIDE
  2. AZOPT [Suspect]
     Active Substance: BRINZOLAMIDE
     Dates: start: 20191119, end: 20200115

REACTIONS (1)
  - Nephrolithiasis [None]

NARRATIVE: CASE EVENT DATE: 20200115
